FAERS Safety Report 6019029-5 (Version None)
Quarter: 2008Q4

REPORT INFORMATION
  Report Type: 
  Country: None (occurrence: None)
  Receive Date: 20081221
  Receipt Date: 20081221
  Transmission Date: 20090506
  Serious: Yes (Hospitalization)
  Sender: FDA-Public Use
  Company Number: None

PATIENT
  Age: 48 Year
  Sex: Male
  Weight: 93 kg

DRUGS (16)
  1. LITHIUM CARBONATE [Suspect]
     Indication: BIPOLAR DISORDER
     Dosage: UNKNOWN PO
     Route: 048
  2. ALPRAZOLAM [Concomitant]
  3. ASPIRIN [Concomitant]
  4. BUPROPION HCL [Suspect]
  5. VENLAFAXINE HCL [Suspect]
  6. ZIPRASIDONE HCL [Concomitant]
  7. LAMOTRIGINE [Concomitant]
  8. ESCITALOPRAM [Concomitant]
  9. RISPERIDONE [Concomitant]
  10. ZONISAMIDE [Concomitant]
  11. LEVOTHYROXINE SODIUM [Suspect]
  12. NIACIN [Concomitant]
  13. OMEPRAZOLE [Concomitant]
  14. SIMVASTATIN [Concomitant]
  15. BISOPROLOL FUMARATE AND HYDROCHLOROTHIAZIDE [Concomitant]
  16. HYDROCHLOROTHIAZIDE [Concomitant]

REACTIONS (7)
  - DEHYDRATION [None]
  - ELECTROLYTE IMBALANCE [None]
  - HYPERNATRAEMIA [None]
  - MENTAL STATUS CHANGES [None]
  - NEPHROGENIC DIABETES INSIPIDUS [None]
  - RENAL FAILURE CHRONIC [None]
  - RHABDOMYOLYSIS [None]
